FAERS Safety Report 9769738 (Version 3)
Quarter: 2015Q2

REPORT INFORMATION
  Report Type: Report from Study
  Country: GR (occurrence: GR)
  Receive Date: 20131218
  Receipt Date: 20150514
  Transmission Date: 20150821
  Serious: Yes (Hospitalization)
  Sender: FDA-Public Use
  Company Number: GR-NOVOPROD-395284

PATIENT
  Sex: Female
  Weight: 1.6 kg

DRUGS (4)
  1. INSULIN DETEMIR 2.4 MMOL/L [Suspect]
     Active Substance: INSULIN DETEMIR
     Dosage: 25 IU, QD
     Route: 064
     Dates: end: 20130914
  2. NOVORAPID [Suspect]
     Active Substance: INSULIN ASPART
     Indication: GESTATIONAL DIABETES
     Dosage: 2 IU, QD
     Route: 064
     Dates: start: 20130809
  3. INSULIN DETEMIR 2.4 MMOL/L [Suspect]
     Active Substance: INSULIN DETEMIR
     Indication: GESTATIONAL DIABETES
     Dosage: 4 IU, QD
     Route: 064
     Dates: start: 20130809
  4. NOVORAPID [Suspect]
     Active Substance: INSULIN ASPART
     Dosage: 19 IU, QD (10 AFTER LUNCH AND 9 AFTER DINNER)
     Route: 064
     Dates: end: 20130914

REACTIONS (3)
  - Low birth weight baby [Unknown]
  - Foetal exposure during pregnancy [Recovered/Resolved]
  - Premature baby [Unknown]

NARRATIVE: CASE EVENT DATE: 20130809
